FAERS Safety Report 17361928 (Version 2)
Quarter: 2020Q1

REPORT INFORMATION
  Report Type: Report from Study
  Country: US (occurrence: US)
  Receive Date: 20200203
  Receipt Date: 20200210
  Transmission Date: 20200409
  Serious: No
  Sender: FDA-Public Use
  Company Number: NVSC2020US022733

PATIENT
  Age: 72 Year
  Sex: Male

DRUGS (1)
  1. LESCOL [Suspect]
     Active Substance: FLUVASTATIN SODIUM
     Indication: PRODUCT USED FOR UNKNOWN INDICATION
     Dosage: UNK
     Route: 065

REACTIONS (1)
  - Drug ineffective [Unknown]
